FAERS Safety Report 21514158 (Version 1)
Quarter: 2022Q4

REPORT INFORMATION
  Report Type: Spontaneous
  Country: NP (occurrence: None)
  Receive Date: 20221027
  Receipt Date: 20221027
  Transmission Date: 20230112
  Serious: Yes (Hospitalization, Other)
  Sender: FDA-Public Use
  Company Number: NP-Unichem Pharmaceuticals (USA) Inc-UCM202209-000954

PATIENT
  Age: 25 Year
  Sex: Male

DRUGS (1)
  1. BACLOFEN [Suspect]
     Active Substance: BACLOFEN
     Indication: Intentional overdose
     Dosage: OVERDOSE WITH 10 TABLETS OF 25 MG BACLOFEN (250 MG TOTAL)

REACTIONS (5)
  - Depressed level of consciousness [Recovered/Resolved]
  - Urinary incontinence [Recovered/Resolved]
  - Metabolic alkalosis [Recovered/Resolved]
  - Pupillary reflex impaired [Recovered/Resolved]
  - Intentional overdose [Unknown]
